FAERS Safety Report 22312582 (Version 2)
Quarter: 2023Q2

REPORT INFORMATION
  Report Type: Spontaneous
  Country: US (occurrence: US)
  Receive Date: 20230512
  Receipt Date: 20230524
  Transmission Date: 20230722
  Serious: Yes (Hospitalization, Other)
  Sender: FDA-Public Use
  Company Number: US-BAXTER-2023BAX021143

PATIENT
  Age: 58 Year
  Sex: Male

DRUGS (1)
  1. CEFEPIME [Suspect]
     Active Substance: CEFEPIME HYDROCHLORIDE
     Indication: Intervertebral discitis
     Dosage: STARTED 2 WEEKS AGO AT 2G EVERY 12 HOURS, DISCOTINED ON DAY 2 OF HOSPITAL ADMISSION
     Route: 042

REACTIONS (7)
  - Tubulointerstitial nephritis [Unknown]
  - Acute kidney injury [Unknown]
  - Metabolic acidosis [Unknown]
  - Toxic encephalopathy [Unknown]
  - Mental status changes [Unknown]
  - Disorientation [Unknown]
  - Myoclonus [Unknown]
